FAERS Safety Report 13042437 (Version 1)
Quarter: 2016Q4

REPORT INFORMATION
  Report Type: Spontaneous
  Country: US (occurrence: US)
  Receive Date: 20161219
  Receipt Date: 20161219
  Transmission Date: 20170207
  Serious: Yes (Hospitalization)
  Sender: FDA-Public Use
  Company Number: US-SMITH AND NEPHEW, INC-2016SMT01098

PATIENT
  Age: 48 Year
  Sex: Male
  Weight: 95.24 kg

DRUGS (10)
  1. REGRANEX [Suspect]
     Active Substance: BECAPLERMIN
     Indication: WOUND
     Dosage: UNK, ONCE
     Route: 061
     Dates: start: 201610, end: 201610
  2. HYDROCODONE [Concomitant]
     Active Substance: HYDROCODONE
  3. REGRANEX [Suspect]
     Active Substance: BECAPLERMIN
     Dosage: UNK UNK, ONCE
     Route: 061
     Dates: start: 20161116, end: 20161116
  4. AUGMENTIN [Concomitant]
     Active Substance: AMOXICILLIN\CLAVULANATE POTASSIUM
  5. ASPIRIN. [Concomitant]
     Active Substance: ASPIRIN
  6. BACID [Concomitant]
     Active Substance: LACTOBACILLUS ACIDOPHILUS
  7. TRAMADOL. [Concomitant]
     Active Substance: TRAMADOL
  8. GABAPENTIN. [Concomitant]
     Active Substance: GABAPENTIN
  9. NOVOLOG MIX 70/30 [Concomitant]
     Active Substance: INSULIN ASPART
  10. TOPROL XL [Concomitant]
     Active Substance: METOPROLOL SUCCINATE

REACTIONS (2)
  - Leg amputation [Recovered/Resolved with Sequelae]
  - Gangrene [Unknown]

NARRATIVE: CASE EVENT DATE: 20161201
